FAERS Safety Report 4700605-4 (Version None)
Quarter: 2005Q2

REPORT INFORMATION
  Report Type: 
  Country: None (occurrence: None)
  Receive Date: 20050627
  Receipt Date: 20050617
  Transmission Date: 20051028
  Serious: Yes (Hospitalization, Other)
  Sender: FDA-Public Use
  Company Number: 200511586EU

PATIENT
  Age: 75 Year
  Sex: Male

DRUGS (3)
  1. CLEXANE [Suspect]
     Indication: CEREBROVASCULAR DISORDER
     Dosage: DOSE: 0.4MLL/4000IU
     Route: 058
     Dates: start: 20050602, end: 20050611
  2. DISPRIL [Concomitant]
     Route: 048
  3. NOOTROPIL [Concomitant]

REACTIONS (3)
  - CEREBROVASCULAR ACCIDENT [None]
  - HAEMATOMA [None]
  - HAEMOGLOBIN DECREASED [None]
